FAERS Safety Report 6475551-9 (Version None)
Quarter: 2009Q4

REPORT INFORMATION
  Report Type: 
  Country: None (occurrence: None)
  Receive Date: 20091204
  Receipt Date: 20091204
  Transmission Date: 20100525
  Serious: Yes (Other)
  Sender: FDA-Public Use
  Company Number: US-PFIZER INC-2009286321

PATIENT
  Sex: Female

DRUGS (2)
  1. BEXTRA [Suspect]
     Dosage: 20 MG, 1X/DAY
     Dates: start: 20031030, end: 20031127
  2. BEXTRA [Suspect]
     Dates: start: 20031030, end: 20031127

REACTIONS (4)
  - CHOKING SENSATION [None]
  - COUGH [None]
  - DYSPNOEA [None]
  - UPPER RESPIRATORY TRACT INFECTION [None]
